FAERS Safety Report 15012891 (Version 1)
Quarter: 2018Q2

REPORT INFORMATION
  Report Type: Spontaneous
  Country: GB (occurrence: GB)
  Receive Date: 20180614
  Receipt Date: 20180614
  Transmission Date: 20180711
  Serious: Yes (Death, Hospitalization)
  Sender: FDA-Public Use
  Company Number: GB-PFIZER INC-2018238540

PATIENT
  Age: 68 Year
  Sex: Female
  Weight: 76 kg

DRUGS (13)
  1. SALBUTAMOL [Concomitant]
     Active Substance: ALBUTEROL
     Dosage: 100 UG
  2. NAPROXEN. [Concomitant]
     Active Substance: NAPROXEN
     Dosage: 3 ACUTE PRESCRIPTIONS ON 5TH MARCH, 12TH FEB AND 24TH JAN
  3. AMLODIPINE [Concomitant]
     Active Substance: AMLODIPINE BESYLATE
     Dosage: 5 MG, 1X/DAY
  4. CALAMINE [Concomitant]
     Active Substance: CALAMINE\FERRIC OXIDE RED\ZINC OXIDE
     Route: 061
     Dates: start: 20180403
  5. SULFASALAZINE. [Suspect]
     Active Substance: SULFASALAZINE
     Dosage: 1 TAB 1X DAY FOR 1 WEEK, THEN 1TAB 2X DAY FOR 1 WEEK, THEN 1 TAB 3X DAY FOR 1 WEEK THEN 2 TAB 2X DAY
     Dates: start: 20180228, end: 20180408
  6. PROCHLORPERAZINE. [Concomitant]
     Active Substance: PROCHLORPERAZINE
     Dosage: 3MG -6MG TWICE A DAY
     Route: 002
  7. OMEPRAZOLE. [Concomitant]
     Active Substance: OMEPRAZOLE
     Dosage: 40 MG, 1X/DAY
  8. PARACETAMOL [Concomitant]
     Active Substance: ACETAMINOPHEN
     Dosage: 1 G, 4X/DAY
  9. PREDNISOLONE. [Concomitant]
     Active Substance: PREDNISOLONE
     Dosage: 40 MG, 1X/DAY (FOR 5 DAYS)
     Dates: start: 20180405, end: 20180409
  10. CHLORPHENAMINE [Concomitant]
     Active Substance: CHLORPHENIRAMINE MALEATE
     Dosage: 4 MG 1 DOSE AS NEEDED
     Dates: start: 20180405
  11. SOLIFENACIN [Concomitant]
     Active Substance: SOLIFENACIN
     Dosage: 5 MG, 1X/DAY
  12. TRAMADOL. [Concomitant]
     Active Substance: TRAMADOL
     Dosage: 300 MG, 1X/DAY
  13. ADCAL D3 [Concomitant]
     Active Substance: CALCIUM CARBONATE\CHOLECALCIFEROL
     Dosage: 4 DF, 1X/DAY
     Route: 048

REACTIONS (9)
  - Confusional state [Unknown]
  - Renal failure [Unknown]
  - Pruritus [Unknown]
  - Drug reaction with eosinophilia and systemic symptoms [Fatal]
  - Malaise [Unknown]
  - Hepatic failure [Unknown]
  - Diarrhoea [Unknown]
  - Hypoglycaemia [Unknown]
  - Dyspnoea [Unknown]
